FAERS Safety Report 4917924-9 (Version None)
Quarter: 2006Q1

REPORT INFORMATION
  Report Type: 
  Country: None (occurrence: None)
  Receive Date: 20060221
  Receipt Date: 20051117
  Transmission Date: 20060701
  Serious: Yes (Hospitalization)
  Sender: FDA-Public Use
  Company Number: US-MERCK-0511USA03153

PATIENT
  Age: 63 Year
  Sex: Female
  Weight: 86 kg

DRUGS (14)
  1. VIOXX [Suspect]
     Indication: ARTHRITIS
     Route: 048
     Dates: start: 20020101, end: 20030101
  2. VIOXX [Suspect]
     Indication: BACK PAIN
     Route: 048
     Dates: start: 20020101, end: 20030101
  3. ASPIRIN [Concomitant]
     Route: 065
  4. ACTOS [Concomitant]
     Route: 065
  5. KLOR-CON [Concomitant]
     Route: 065
  6. TRICOR [Concomitant]
     Route: 065
  7. SYNTHROID [Concomitant]
     Route: 065
  8. ALTACE [Concomitant]
     Route: 065
  9. TOPROL-XL [Concomitant]
     Route: 065
  10. LASIX [Concomitant]
     Route: 065
  11. HUMULIN [Concomitant]
     Route: 065
  12. INSULIN [Concomitant]
     Route: 065
  13. PAXIL [Concomitant]
     Route: 065
  14. PREMARIN [Concomitant]
     Route: 065

REACTIONS (4)
  - ANAEMIA [None]
  - CARDIAC DISORDER [None]
  - MYOCARDIAL INFARCTION [None]
  - THYROID DISORDER [None]
